FAERS Safety Report 9491072 (Version 1)
Quarter: 2013Q3

REPORT INFORMATION
  Report Type: Spontaneous
  Country: US (occurrence: None)
  Receive Date: 20130826
  Receipt Date: 20130826
  Transmission Date: 20140515
  Serious: Yes (Disabling)
  Sender: FDA-Public Use
  Company Number: 1859303

PATIENT
  Age: 61 Year
  Sex: Female

DRUGS (1)
  1. METHOTREXATE [Suspect]
     Indication: LYMPHOMA
     Dosage: UNNKNOWN, 1 WEEK OTHER

REACTIONS (3)
  - Cataract [None]
  - Disease progression [None]
  - Corneal disorder [None]
